FAERS Safety Report 23998577 (Version 3)
Quarter: 2024Q3

REPORT INFORMATION
  Report Type: Spontaneous
  Country: US (occurrence: US)
  Receive Date: 20240621
  Receipt Date: 20240911
  Transmission Date: 20241016
  Serious: Yes (Other)
  Sender: ALVOGEN
  Company Number: US-BMS-IMIDS-REMS_SI-11424899

PATIENT
  Sex: Male

DRUGS (1)
  1. LENALIDOMIDE [Suspect]
     Active Substance: LENALIDOMIDE
     Indication: Plasma cell myeloma
     Dosage: 10 MG
     Route: 048

REACTIONS (3)
  - Disease progression [Recovering/Resolving]
  - Plasma cell myeloma [Recovering/Resolving]
  - Drug ineffective [Unknown]
